FAERS Safety Report 5383509-6 (Version None)
Quarter: 2007Q3

REPORT INFORMATION
  Report Type: 
  Country: None (occurrence: None)
  Receive Date: 20070706
  Receipt Date: 20070620
  Transmission Date: 20080115
  Serious: Yes (Life-Threatening, Hospitalization)
  Sender: FDA-Public Use
  Company Number: DSA_29987_2007

PATIENT
  Sex: Female

DRUGS (2)
  1. TAVOR/00273201/ (TREVOR) 1 MG [Suspect]
     Dosage: (4 MG 1X ORAL)
     Route: 048
     Dates: start: 20070525, end: 20070525
  2. ACETAMINOPHEN [Suspect]
     Dosage: (4 MG 1X ORAL)
     Route: 048
     Dates: start: 20070525, end: 20070525

REACTIONS (3)
  - INTENTIONAL OVERDOSE [None]
  - SUICIDE ATTEMPT [None]
  - VOMITING [None]
